FAERS Safety Report 13276635 (Version 1)
Quarter: 2017Q1

REPORT INFORMATION
  Report Type: Spontaneous
  Country: US (occurrence: US)
  Receive Date: 20170228
  Receipt Date: 20170228
  Transmission Date: 20170428
  Serious: Yes (Hospitalization)
  Sender: FDA-Public Use
  Company Number: None

PATIENT

DRUGS (3)
  1. AZATHIOPRINE 112.5MG [Suspect]
     Active Substance: AZATHIOPRINE
  2. OMEPRAZOLE 20 MG [Suspect]
     Active Substance: OMEPRAZOLE
  3. TACROLIMUS. [Suspect]
     Active Substance: TACROLIMUS

REACTIONS (5)
  - Clostridium test positive [None]
  - Abdominal pain upper [None]
  - Diarrhoea [None]
  - Vomiting [None]
  - Nausea [None]

NARRATIVE: CASE EVENT DATE: 20150208
